FAERS Safety Report 5446122-8 (Version None)
Quarter: 2007Q3

REPORT INFORMATION
  Report Type: 
  Country: None (occurrence: None)
  Receive Date: 20070904
  Receipt Date: 20070814
  Transmission Date: 20080115
  Serious: Yes (Other)
  Sender: FDA-Public Use
  Company Number: 6033384

PATIENT
  Age: 29 Year
  Sex: Female

DRUGS (2)
  1. CIPROFLAXACIN [Suspect]
     Dosage: 800 MG (400 MG, 2 IN 1 D);
  2. TOBRAMYCIN [Concomitant]

REACTIONS (3)
  - ACTIVATED PARTIAL THROMBOPLASTIN TIME PROLONGED [None]
  - COAGULOPATHY [None]
  - INTERNATIONAL NORMALISED RATIO INCREASED [None]
